FAERS Safety Report 5323606-4 (Version None)
Quarter: 2007Q2

REPORT INFORMATION
  Report Type: 
  Country: None (occurrence: None)
  Receive Date: 20070509
  Receipt Date: 20070509
  Transmission Date: 20071010
  Serious: No
  Sender: FDA-Public Use
  Company Number: None

PATIENT
  Age: 56 Year
  Sex: Male
  Weight: 80.7403 kg

DRUGS (1)
  1. OXYCONTIN [Suspect]
     Indication: PAIN
     Dosage: 20 MG X 4

REACTIONS (11)
  - DRUG HYPERSENSITIVITY [None]
  - GASTROOESOPHAGEAL REFLUX DISEASE [None]
  - HAEMATEMESIS [None]
  - HAEMATOCHEZIA [None]
  - MEDICAL DIET [None]
  - NAUSEA [None]
  - PHARMACEUTICAL PRODUCT COMPLAINT [None]
  - PROSTATIC DISORDER [None]
  - PRURITUS GENERALISED [None]
  - STOMACH DISCOMFORT [None]
  - VISUAL DISTURBANCE [None]
